FAERS Safety Report 12254041 (Version 2)
Quarter: 2016Q2

REPORT INFORMATION
  Report Type: Spontaneous
  Country: US (occurrence: US)
  Receive Date: 20160411
  Receipt Date: 20160506
  Transmission Date: 20160815
  Serious: Yes (Death)
  Sender: FDA-Public Use
  Company Number: US-PFIZER INC-2016198240

PATIENT
  Sex: Female

DRUGS (2)
  1. STREPTOMYCIN [Suspect]
     Active Substance: STREPTOMYCIN\STREPTOMYCIN SULFATE
     Indication: PYELONEPHRITIS ACUTE
     Dosage: 1 G, DAILY
     Route: 030
  2. TETRACYCLINE HCL [Suspect]
     Active Substance: TETRACYCLINE HYDROCHLORIDE
     Indication: PYELONEPHRITIS ACUTE
     Dosage: 1.5 TO 2 G, DAILY
     Route: 042

REACTIONS (1)
  - Liver disorder [Fatal]
